FAERS Safety Report 4327939-X (Version None)
Quarter: 2004Q1

REPORT INFORMATION
  Report Type: 
  Country: None (occurrence: None)
  Receive Date: 20040325
  Receipt Date: 20040312
  Transmission Date: 20041129
  Serious: Yes (Hospitalization, Other)
  Sender: FDA-Public Use
  Company Number: 2004000911

PATIENT
  Age: 47 Year
  Sex: Male
  Weight: 86.1834 kg

DRUGS (1)
  1. ZITHROMAX [Suspect]
     Indication: UPPER RESPIRATORY TRACT INFECTION
     Dosage: ORAL
     Route: 048
     Dates: start: 20031220, end: 20031222

REACTIONS (12)
  - BLOOD URINE [None]
  - HAEMODIALYSIS [None]
  - HAEMOLYSIS [None]
  - HAEMOLYTIC ANAEMIA [None]
  - HEPATIC FAILURE [None]
  - MEDICAL DEVICE COMPLICATION [None]
  - MYOGLOBINAEMIA [None]
  - POST PROCEDURAL COMPLICATION [None]
  - RENAL FAILURE ACUTE [None]
  - RENAL TUBULAR NECROSIS [None]
  - TREMOR [None]
  - VIRAL INFECTION [None]
